FAERS Safety Report 9939989 (Version 1)
Quarter: 2014Q1

REPORT INFORMATION
  Report Type: Report from Study
  Country: US (occurrence: US)
  Receive Date: 20140303
  Receipt Date: 20140303
  Transmission Date: 20141002
  Serious: No
  Sender: FDA-Public Use
  Company Number: US-ABBVIE-13P-163-1035193-00

PATIENT
  Age: 41 Year
  Sex: Male

DRUGS (3)
  1. HUMIRA PEN [Suspect]
     Indication: PSORIASIS
     Dates: start: 20121019
  2. UNKNOWN MEDICATION [Concomitant]
     Indication: BLOOD CHOLESTEROL ABNORMAL
     Dosage: 2 PILLS
  3. UNKNOWN MEDICATION [Concomitant]
     Indication: BLOOD PRESSURE ABNORMAL
     Dosage: ONE PILL

REACTIONS (1)
  - Drug ineffective [Not Recovered/Not Resolved]
